FAERS Safety Report 9431102 (Version 1)
Quarter: 2013Q3

REPORT INFORMATION
  Report Type: Spontaneous
  Country: GB (occurrence: GB)
  Receive Date: 20130730
  Receipt Date: 20130730
  Transmission Date: 20140515
  Serious: Yes (Other)
  Sender: FDA-Public Use
  Company Number: GB-BRISTOL-MYERS SQUIBB COMPANY-19067354

PATIENT
  Age: 55 Year
  Sex: Male
  Weight: 93.2 kg

DRUGS (10)
  1. BYDUREON [Suspect]
     Indication: TYPE 2 DIABETES MELLITUS
  2. GLICLAZIDE [Interacting]
  3. ACYCLOVIR SODIUM [Interacting]
     Indication: HERPES ZOSTER
     Route: 048
     Dates: start: 20130610
  4. AMLODIPINE [Concomitant]
  5. ASPIRIN [Concomitant]
  6. EZETIMIBE [Concomitant]
  7. IVABRADINE [Concomitant]
  8. RABEPRAZOLE [Concomitant]
  9. RANITIDINE [Concomitant]
  10. TRAMADOL [Concomitant]

REACTIONS (2)
  - Hypoglycaemia [Recovered/Resolved]
  - Drug interaction [Unknown]
